FAERS Safety Report 6166245-8 (Version None)
Quarter: 2009Q2

REPORT INFORMATION
  Report Type: 
  Country: None (occurrence: None)
  Receive Date: 20090422
  Receipt Date: 20090422
  Transmission Date: 20091009
  Serious: Yes (Other)
  Sender: FDA-Public Use
  Company Number: None

PATIENT
  Age: 6 Year
  Sex: Male

DRUGS (1)
  1. NEOMYCIN AND POLYMYXIN B SULFATES AND HYDROCORTISONE [Suspect]
     Indication: CONJUNCTIVITIS
     Dosage: 2 DROPS EACH EYE Q4H
     Dates: start: 20090420, end: 20090421

REACTIONS (2)
  - BURNING SENSATION [None]
  - DRUG DISPENSING ERROR [None]
